FAERS Safety Report 8152706-9 (Version None)
Quarter: 2012Q1

REPORT INFORMATION
  Report Type: 
  Country: None (occurrence: None)
  Receive Date: 20120221
  Receipt Date: 20120109
  Transmission Date: 20120608
  Serious: Yes (Hospitalization)
  Sender: FDA-Public Use
  Company Number: CA-JNJFOC-20110409804

PATIENT
  Sex: Male
  Weight: 68 kg

DRUGS (2)
  1. HYDROCORTISONE [Concomitant]
     Indication: PREMEDICATION
     Route: 065
  2. REMICADE [Suspect]
     Indication: CROHN'S DISEASE
     Route: 042
     Dates: start: 20101201

REACTIONS (3)
  - OBSTRUCTION [None]
  - GASTRIC OPERATION [None]
  - INTESTINAL RESECTION [None]
